FAERS Safety Report 26002083 (Version 1)
Quarter: 2025Q4

REPORT INFORMATION
  Report Type: Report from Study
  Country: EU (occurrence: EU)
  Receive Date: 20251105
  Receipt Date: 20251105
  Transmission Date: 20260118
  Serious: Yes (Other)
  Sender: VERITY PHARMACEUTICALS INC.
  Company Number: EU-VER-202500007

PATIENT
  Sex: Female

DRUGS (8)
  1. TRIPTORELIN [Suspect]
     Active Substance: TRIPTORELIN
     Indication: Infertility female
     Dosage: POWDER AND SOLVENT FOR SOLUTION FOR INJECTION
     Route: 065
  2. ESTRADIOL HEMIHYDRATE [Concomitant]
     Active Substance: ESTRADIOL HEMIHYDRATE
     Indication: Hormone replacement therapy
     Dosage: 2 MILLIGRAM(S), IN 0.5 DAY
     Route: 065
  3. GONAL-F [Concomitant]
     Active Substance: FOLLITROPIN
     Indication: Controlled ovarian stimulation
     Route: 065
  4. Puregon [Concomitant]
     Indication: Controlled ovarian stimulation
     Route: 065
  5. CETRORELIX [Concomitant]
     Active Substance: CETRORELIX
     Indication: Hormone replacement therapy
     Route: 065
  6. PROGESTERONE [Concomitant]
     Active Substance: PROGESTERONE
     Indication: Hormone replacement therapy
     Dosage: 800 MILLIGRAM(S), IN 1 DAY,  INTRAVAGINAL PROGESTERONE
     Route: 065
  7. PROGESTERONE [Concomitant]
     Active Substance: PROGESTERONE
     Indication: Hormone replacement therapy
     Dosage: (800 MILLIGRAM(S), IN 1 DAY, INTRAVAGINAL PROGESTERONE
     Route: 065
  8. TROMALYT [Concomitant]
     Active Substance: ASPIRIN
     Dosage: 150 MILLIGRAM(S), IN 1 DAY
     Route: 065

REACTIONS (4)
  - Off label use [Unknown]
  - Ectopic pregnancy [Unknown]
  - Abortion spontaneous [Unknown]
  - Ovarian hyperstimulation syndrome [Unknown]
